FAERS Safety Report 15684530 (Version 1)
Quarter: 2018Q4

REPORT INFORMATION
  Report Type: Spontaneous
  Country: US (occurrence: US)
  Receive Date: 20181204
  Receipt Date: 20181204
  Transmission Date: 20190205
  Serious: No
  Sender: FDA-Public Use
  Company Number: US-VERTEX PHARMACEUTICALS-2017-000883

PATIENT
  Sex: Female

DRUGS (1)
  1. ORKAMBI [Suspect]
     Active Substance: IVACAFTOR\LUMACAFTOR
     Indication: CYSTIC FIBROSIS
     Dosage: 200-125 MG (FREQUENCY UNKNOWN)
     Route: 048
     Dates: start: 20150804

REACTIONS (7)
  - Menstruation delayed [Unknown]
  - Product dose omission [Unknown]
  - Menorrhagia [Unknown]
  - Drug interaction [Unknown]
  - Amenorrhoea [Not Recovered/Not Resolved]
  - Abdominal pain [Not Recovered/Not Resolved]
  - Polymenorrhoea [Unknown]

NARRATIVE: CASE EVENT DATE: 2017
